FAERS Safety Report 13751533 (Version 1)
Quarter: 2017Q3

REPORT INFORMATION
  Report Type: Not Available
  Country: US (occurrence: US)
  Receive Date: 20170713
  Receipt Date: 20170713
  Transmission Date: 20171127
  Serious: Yes (Other)
  Sender: FDA-Public Use
  Company Number: US-ANIPHARMA-2017-US-007743

PATIENT
  Age: 17 Year
  Sex: Female

DRUGS (2)
  1. FLUOXETINE HYDROCHLORIDE (NON-SPECIFIC) [Suspect]
     Active Substance: FLUOXETINE HYDROCHLORIDE
     Dosage: 20MG
  2. LUMACAFTOR/IVACAFTOR [Suspect]
     Active Substance: IVACAFTOR\LUMACAFTOR

REACTIONS (3)
  - Depression [Unknown]
  - Drug interaction [Unknown]
  - Suicidal ideation [Unknown]
